FAERS Safety Report 10618855 (Version 1)
Quarter: 2014Q4

REPORT INFORMATION
  Report Type: Spontaneous
  Country: SE (occurrence: None)
  Receive Date: 20141125
  Receipt Date: 20141125
  Transmission Date: 20150529
  Serious: Yes (Hospitalization)
  Sender: FDA-Public Use
  Company Number: 2014-003370

PATIENT
  Age: 47 Year
  Sex: Male

DRUGS (1)
  1. OPTINATE (RISEDRONATE SODIUM) TABLET, UNKMG [Suspect]
     Active Substance: RISEDRONATE SODIUM
     Route: 048

REACTIONS (1)
  - Atypical femur fracture [None]
